FAERS Safety Report 5894152-4 (Version None)
Quarter: 2008Q3

REPORT INFORMATION
  Report Type: 
  Country: None (occurrence: None)
  Receive Date: 20080923
  Receipt Date: 20080205
  Transmission Date: 20090109
  Serious: No
  Sender: FDA-Public Use
  Company Number: US-ASTRAZENECA-2008UW02406

PATIENT
  Sex: Female

DRUGS (3)
  1. SEROQUEL [Suspect]
     Indication: SLEEP DISORDER
     Route: 048
  2. OXYCODONE HCL [Suspect]
     Indication: PAIN
     Dosage: BID PRN
  3. ZOLOFT [Suspect]

REACTIONS (1)
  - FEELING ABNORMAL [None]
